FAERS Safety Report 9742900 (Version 2)
Quarter: 2013Q4

REPORT INFORMATION
  Report Type: Spontaneous
  Country: US (occurrence: US)
  Receive Date: 20131210
  Receipt Date: 20131210
  Transmission Date: 20140711
  Serious: Yes (Hospitalization, Other)
  Sender: FDA-Public Use
  Company Number: US-ELI_LILLY_AND_COMPANY-US_0503113830

PATIENT
  Age: 49 Year
  Sex: Female

DRUGS (10)
  1. FLUOXETINE HYDROCHLORIDE [Suspect]
     Dosage: 10 MG, DAILY (1/D)
     Route: 048
  2. HYDROCHLOROTHIAZIDE [Concomitant]
     Dosage: 25 MG, DAILY (1/D)
  3. GABAPENTIN [Concomitant]
     Dosage: 600 MG, 2/D
  4. PROPRANOLOL EXTENDED RELEASE [Concomitant]
     Dosage: 160 MG, DAILY (1/D)
  5. CARISOPRODOL [Concomitant]
     Dosage: 350 MG, 4/D
  6. IMIPRAMINE [Concomitant]
     Dosage: 50 MG, EACH EVENING
  7. MIRTAZAPINE [Concomitant]
     Dosage: 15 MG, EACH EVENING
  8. LEVOFLOXACIN [Concomitant]
     Indication: PYELONEPHRITIS
     Dosage: 500 MG, DAILY (1/D)
     Route: 042
  9. FERROUS SULFATE [Concomitant]
     Dosage: 325 MG, 2/D
  10. LORATADINE W/ PSEUDOEPHEDRINE [Concomitant]
     Dosage: UNK, 2/D

REACTIONS (5)
  - Drug interaction [Recovered/Resolved]
  - Electrocardiogram QT prolonged [Recovered/Resolved]
  - Pyelonephritis [Recovered/Resolved]
  - Urosepsis [Recovered/Resolved]
  - Blood potassium increased [Recovered/Resolved]
